FAERS Safety Report 9090504 (Version 2)
Quarter: 2013Q2

REPORT INFORMATION
  Report Type: Report from Study
  Country: PL (occurrence: PL)
  Receive Date: 20130201
  Receipt Date: 20130613
  Transmission Date: 20140414
  Serious: Yes (Death, Hospitalization)
  Sender: FDA-Public Use
  Company Number: PL-TEVA-380529USA

PATIENT
  Age: 60 Year
  Sex: Male
  Weight: 72 kg

DRUGS (5)
  1. BENDAMUSTINE [Suspect]
     Indication: CHRONIC LYMPHOCYTIC LEUKAEMIA
     Route: 042
     Dates: start: 20121218, end: 20121218
  2. BENDAMUSTINE [Suspect]
     Route: 042
     Dates: start: 20121219, end: 20121219
  3. BISOCARD [Concomitant]
     Dates: start: 2010
  4. HEVIRAN [Concomitant]
     Dates: start: 20101221
  5. ALLOPURINOL [Concomitant]
     Dates: start: 20121113

REACTIONS (3)
  - Cardiac failure acute [Fatal]
  - Febrile neutropenia [Fatal]
  - Pneumonia [Fatal]
